FAERS Safety Report 7531744-0 (Version None)
Quarter: 2011Q2

REPORT INFORMATION
  Report Type: 
  Country: None (occurrence: None)
  Receive Date: 20110608
  Receipt Date: 20110531
  Transmission Date: 20111010
  Serious: Yes (Hospitalization, Other)
  Sender: FDA-Public Use
  Company Number: US-ROCHE-552275

PATIENT
  Sex: Female
  Weight: 70.3 kg

DRUGS (1)
  1. ACCUTANE [Suspect]
     Indication: ACNE
     Dosage: SHE REFILLED ACCUTANE APPROXIMATELY 12 TIMES.
     Route: 065
     Dates: start: 19990930, end: 20000303

REACTIONS (14)
  - BIPOLAR DISORDER [None]
  - ANAEMIA [None]
  - ARTHRALGIA [None]
  - ERYTHEMA [None]
  - SUICIDAL IDEATION [None]
  - DEPRESSION [None]
  - COLITIS [None]
  - LIP DRY [None]
  - BLOOD TRIGLYCERIDES INCREASED [None]
  - COLITIS ULCERATIVE [None]
  - INFLAMMATORY BOWEL DISEASE [None]
  - BACK PAIN [None]
  - ILEITIS [None]
  - VISUAL IMPAIRMENT [None]
